FAERS Safety Report 22147945 (Version 2)
Quarter: 2023Q1

REPORT INFORMATION
  Report Type: Spontaneous
  Country: US (occurrence: US)
  Receive Date: 20230328
  Receipt Date: 20230330
  Transmission Date: 20230417
  Serious: No
  Sender: FDA-Public Use
  Company Number: US-002147023-NVSC2023US070499

PATIENT
  Sex: Female

DRUGS (1)
  1. PROMACTA [Suspect]
     Active Substance: ELTROMBOPAG OLAMINE
     Indication: Heavy menstrual bleeding
     Dosage: 50 MG, QD
     Route: 048
     Dates: start: 20230222

REACTIONS (3)
  - Cough [Unknown]
  - Nasal congestion [Unknown]
  - Product use in unapproved indication [Unknown]
